FAERS Safety Report 7026635-8 (Version None)
Quarter: 2010Q4

REPORT INFORMATION
  Report Type: 
  Country: None (occurrence: None)
  Receive Date: 20101004
  Receipt Date: 20100927
  Transmission Date: 20110411
  Serious: Yes (Hospitalization, Other)
  Sender: FDA-Public Use
  Company Number: US-TEVA-249804USA

PATIENT
  Age: 76 Year
  Sex: Female

DRUGS (2)
  1. PACLITAXOL INJECTION (ZGP) 30MG/5ML, 150MG/25ML [Suspect]
     Indication: BREAST CANCER
  2. TRASTUZUMAB [Concomitant]

REACTIONS (1)
  - ACQUIRED HAEMOPHILIA [None]
